FAERS Safety Report 14023507 (Version 2)
Quarter: 2017Q4

REPORT INFORMATION
  Report Type: Report from Study
  Country: CN (occurrence: CN)
  Receive Date: 20170929
  Receipt Date: 20171120
  Transmission Date: 20180321
  Serious: Yes (Other)
  Sender: FDA-Public Use
  Company Number: CN-BAYER-2017-174026

PATIENT
  Sex: Male

DRUGS (1)
  1. STIVARGA [Suspect]
     Active Substance: REGORAFENIB
     Indication: COLORECTAL CANCER METASTATIC
     Dosage: 160 MG, QD
     Route: 048
     Dates: start: 20170903, end: 20170928

REACTIONS (7)
  - Erythema [Unknown]
  - Dysphonia [Unknown]
  - Colorectal cancer metastatic [None]
  - Pain in extremity [Unknown]
  - Scrotal infection [Unknown]
  - Peripheral swelling [Unknown]
  - Scrotal ulcer [Unknown]

NARRATIVE: CASE EVENT DATE: 20170908
